FAERS Safety Report 8098310 (Version 2)
Quarter: 2012Q4

REPORT INFORMATION
  Report Type: 
  Country: US (occurrence: US)
  Receive Date: 20110819
  Receipt Date: 20121121
  Transmission Date: 20130627
  Serious: Yes (Hospitalization)
  Sender: FDA-Public Use
  Company Number: US-GLAXOSMITHKLINE-A0925404A

PATIENT
  Age: 52 Year
  Sex: Male

DRUGS (1)
  1. AVANDIA [Suspect]
     Indication: DIABETES MELLITUS
     Dosage: 4MG Per day
     Route: 048
     Dates: start: 200601, end: 200705

REACTIONS (4)
  - Cardiac disorder [Not Recovered/Not Resolved]
  - Palpitations [Unknown]
  - Arterial disorder [Unknown]
  - Heart rate increased [Unknown]
